FAERS Safety Report 6554115-2 (Version None)
Quarter: 2010Q1

REPORT INFORMATION
  Report Type: 
  Country: None (occurrence: None)
  Receive Date: 20100125
  Receipt Date: 20100125
  Transmission Date: 20100710
  Serious: Yes (Other)
  Sender: FDA-Public Use
  Company Number: None

PATIENT
  Sex: Female
  Weight: 99.7913 kg

DRUGS (1)
  1. LEVAQUIN [Suspect]
     Indication: SINUSITIS
     Dosage: 500MG ONCE DAILY PO
     Route: 048
     Dates: start: 20100108, end: 20100110

REACTIONS (4)
  - ABNORMAL DREAMS [None]
  - HALLUCINATION [None]
  - NIGHT SWEATS [None]
  - POOR QUALITY SLEEP [None]
